FAERS Safety Report 7809782-X (Version None)
Quarter: 2011Q4

REPORT INFORMATION
  Report Type: 
  Country: None (occurrence: None)
  Receive Date: 20111012
  Receipt Date: 20111004
  Transmission Date: 20120403
  Serious: Yes (Other)
  Sender: FDA-Public Use
  Company Number: FR-JNJFOC-20111003393

PATIENT

DRUGS (10)
  1. DEXAMETHASONE [Suspect]
     Route: 048
  2. VINCRISTINE [Suspect]
     Indication: ACUTE LYMPHOCYTIC LEUKAEMIA
     Dosage: ADMINISTERED OVER 5 MINS ON DAY 1 AND 29
     Route: 042
  3. DEXAMETHASONE [Suspect]
     Indication: ACUTE LYMPHOCYTIC LEUKAEMIA
     Route: 048
  4. PREDNISONE [Concomitant]
     Indication: PRODUCT USED FOR UNKNOWN INDICATION
     Route: 048
  5. CYCLOPHOSPHAMIDE [Suspect]
     Indication: ACUTE LYMPHOCYTIC LEUKAEMIA
     Route: 065
  6. METHOTREXATE [Concomitant]
     Indication: PROPHYLAXIS
     Route: 037
  7. HYDROCORTISONE [Concomitant]
     Route: 065
  8. DOXORUBICIN HCL [Suspect]
     Indication: ACUTE LYMPHOCYTIC LEUKAEMIA
     Dosage: OVER 1 HOUR ON DAY 1-4  ON DAY 29
     Route: 042
  9. DOXORUBICIN HCL [Suspect]
     Dosage: OVER 1 HOUR ON DAY 1
     Route: 042
  10. VINCRISTINE [Suspect]
     Dosage: DAY 1-4 CONTINOUS INFUSION (CI)
     Route: 042

REACTIONS (2)
  - PNEUMONIA [None]
  - SEPTIC SHOCK [None]
